FAERS Safety Report 13276320 (Version 3)
Quarter: 2017Q4

REPORT INFORMATION
  Report Type: Report from Study
  Country: US (occurrence: US)
  Receive Date: 20170228
  Receipt Date: 20171030
  Transmission Date: 20180320
  Serious: Yes (Hospitalization)
  Sender: FDA-Public Use
  Company Number: PHEH2017US005959

PATIENT
  Age: 56 Year
  Sex: Female

DRUGS (1)
  1. ILARIS [Suspect]
     Active Substance: CANAKINUMAB
     Indication: PRODUCT USED FOR UNKNOWN INDICATION
     Dosage: UNK
     Route: 065

REACTIONS (5)
  - Ear infection [Unknown]
  - Rhinitis [Unknown]
  - Sinusitis [Recovering/Resolving]
  - Inappropriate schedule of drug administration [Unknown]
  - Viral pharyngitis [Unknown]

NARRATIVE: CASE EVENT DATE: 20170913
